FAERS Safety Report 9931533 (Version 1)
Quarter: 2014Q1

REPORT INFORMATION
  Report Type: Spontaneous
  Country: CH (occurrence: None)
  Receive Date: 20140224
  Receipt Date: 20140224
  Transmission Date: 20141002
  Serious: Yes (Other)
  Sender: FDA-Public Use
  Company Number: 20140062

PATIENT
  Age: 9 Year
  Sex: Male
  Weight: 32 kg

DRUGS (3)
  1. FERINJECT (FERRIC CARBOXYMALTOSE-VIFOR) [Suspect]
     Indication: IRON DEFICIENCY
     Route: 042
     Dates: start: 20140107, end: 20140107
  2. HUMIRA [Concomitant]
  3. METHOTREXATE [Concomitant]

REACTIONS (2)
  - Eye swelling [None]
  - Urticaria [None]
